FAERS Safety Report 14388629 (Version 3)
Quarter: 2020Q4

REPORT INFORMATION
  Report Type: Spontaneous
  Country: US (occurrence: US)
  Receive Date: 20180115
  Receipt Date: 20201211
  Transmission Date: 20210113
  Serious: Yes (Other)
  Sender: FDA-Public Use
  Company Number: US-SA-2017SA216885

PATIENT

DRUGS (13)
  1. SODIUM CHLORIDE. [Concomitant]
     Active Substance: SODIUM CHLORIDE
     Dosage: UNK
  2. NEOSAR [Concomitant]
     Active Substance: CYCLOPHOSPHAMIDE
     Indication: BREAST CANCER FEMALE
  3. CYTOXAN [Concomitant]
     Active Substance: CYCLOPHOSPHAMIDE
     Indication: BREAST CANCER FEMALE
     Dosage: UNK
     Dates: start: 20100312
  4. DEXAMETHASONE. [Concomitant]
     Active Substance: DEXAMETHASONE
  5. TAXOTERE [Suspect]
     Active Substance: DOCETAXEL
     Indication: BREAST CANCER FEMALE
     Dosage: 75 MG, Q3W
     Route: 042
     Dates: start: 20100312, end: 20100312
  6. NOR-QD [Concomitant]
     Active Substance: NORETHINDRONE
  7. DOXORUBICIN [Concomitant]
     Active Substance: DOXORUBICIN
     Indication: BREAST CANCER FEMALE
  8. PROCHLORPERAZINE MALEATE. [Concomitant]
     Active Substance: PROCHLORPERAZINE MALEATE
  9. LORAZEPAM. [Concomitant]
     Active Substance: LORAZEPAM
  10. ONDANSETRON [Concomitant]
     Active Substance: ONDANSETRON
     Dosage: UNK
  11. APREPITANT. [Concomitant]
     Active Substance: APREPITANT
     Dosage: 125 MG, QD
  12. TAXOTERE [Suspect]
     Active Substance: DOCETAXEL
     Dosage: 75 MG, Q3W
     Route: 042
     Dates: start: 20100630, end: 20100630
  13. DECADRON (DEXAMETHASONE SODIUM PHOSPHATE) [Concomitant]
     Active Substance: DEXAMETHASONE SODIUM PHOSPHATE

REACTIONS (4)
  - Emotional distress [Unknown]
  - Alopecia [Not Recovered/Not Resolved]
  - Anxiety [Unknown]
  - Psychological trauma [Unknown]

NARRATIVE: CASE EVENT DATE: 20100412
